FAERS Safety Report 5191963-8 (Version None)
Quarter: 2006Q4

REPORT INFORMATION
  Report Type: 
  Country: None (occurrence: None)
  Receive Date: 20061227
  Receipt Date: 20061206
  Transmission Date: 20070319
  Serious: Yes (Other)
  Sender: FDA-Public Use
  Company Number: 2006AP05919

PATIENT
  Age: 42 Year
  Sex: Male

DRUGS (6)
  1. XYLOCAINE [Suspect]
     Indication: EPIDURAL ANAESTHESIA
     Route: 037
  2. DIPRIVAN [Suspect]
     Indication: GENERAL ANAESTHESIA
     Route: 042
  3. BETAMETHASONE [Suspect]
     Route: 008
  4. ISOTONIC SODIUM CHLORIDE SOLUTION [Suspect]
     Route: 008
  5. FENTANYL [Suspect]
     Route: 042
  6. OMNIPAQUE 140 [Suspect]

REACTIONS (2)
  - RETINAL HAEMORRHAGE [None]
  - VITREOUS HAEMORRHAGE [None]
